FAERS Safety Report 7085621-2 (Version None)
Quarter: 2010Q4

REPORT INFORMATION
  Report Type: 
  Country: None (occurrence: None)
  Receive Date: 20101105
  Receipt Date: 20101029
  Transmission Date: 20110411
  Serious: Yes (Hospitalization)
  Sender: FDA-Public Use
  Company Number: US-ASTRAZENECA-2010SE33710

PATIENT
  Sex: Female
  Weight: 79.4 kg

DRUGS (3)
  1. SYMBICORT [Suspect]
     Indication: CHRONIC OBSTRUCTIVE PULMONARY DISEASE
     Dosage: 160 MCG, 2 PUFFS TWO TIMES A DAY
     Route: 055
     Dates: start: 20100301
  2. LIPITOR [Concomitant]
  3. METOPROLOL [Concomitant]

REACTIONS (5)
  - ANAEMIA [None]
  - DRUG DOSE OMISSION [None]
  - DRUG INEFFECTIVE [None]
  - DYSPNOEA [None]
  - VERTIGO [None]
